FAERS Safety Report 9258675 (Version 3)
Quarter: 2013Q3

REPORT INFORMATION
  Report Type: Report from Study
  Country: DK (occurrence: DK)
  Receive Date: 20130426
  Receipt Date: 20130918
  Transmission Date: 20140515
  Serious: Yes (Hospitalization)
  Sender: FDA-Public Use
  Company Number: DK-UCBSA-084126

PATIENT
  Age: 54 Year
  Sex: Male
  Weight: 106 kg

DRUGS (5)
  1. LACOSAMIDE [Suspect]
     Indication: EPILEPSY
     Route: 048
     Dates: start: 20121030
  2. LAMOTRIGIN [Concomitant]
     Indication: EPILEPSY
     Route: 048
     Dates: start: 20120412
  3. PANTOPRAZOL [Concomitant]
     Indication: ULCER
     Route: 048
     Dates: start: 20110509
  4. BUDENOFALK [Concomitant]
     Indication: CROHN^S DISEASE
     Route: 048
     Dates: start: 20110510
  5. PRIMPERAN [Concomitant]
     Indication: NAUSEA
     Route: 048
     Dates: start: 20120910

REACTIONS (1)
  - Convulsion [Recovered/Resolved]
